FAERS Safety Report 6844627-6 (Version None)
Quarter: 2010Q3

REPORT INFORMATION
  Report Type: 
  Country: None (occurrence: None)
  Receive Date: 20100715
  Receipt Date: 20100712
  Transmission Date: 20110219
  Serious: Yes (Hospitalization)
  Sender: FDA-Public Use
  Company Number: US-MERCK-1007USA01259

PATIENT
  Age: 52 Year
  Sex: Male

DRUGS (3)
  1. JANUVIA [Suspect]
     Indication: BLOOD GLUCOSE INCREASED
     Dosage: ONCE DAILY IN THE MORNING
     Route: 048
     Dates: end: 20100710
  2. METFORMIN [Concomitant]
     Route: 065
  3. PERCOCET [Concomitant]
     Route: 065

REACTIONS (3)
  - BACK PAIN [None]
  - PANCREATITIS [None]
  - SLEEP DISORDER [None]
